FAERS Safety Report 8464459-5 (Version None)
Quarter: 2012Q2

REPORT INFORMATION
  Report Type: 
  Country: None (occurrence: None)
  Receive Date: 20120626
  Receipt Date: 20120618
  Transmission Date: 20120825
  Serious: Yes (Other)
  Sender: FDA-Public Use
  Company Number: DE-UCBSA-045622

PATIENT
  Age: 40 Year
  Sex: Male
  Weight: 87 kg

DRUGS (28)
  1. PREDNISONE [Concomitant]
     Route: 048
     Dates: start: 20110622, end: 20110704
  2. PANTOPRAZOLE [Concomitant]
     Route: 048
     Dates: start: 20110708
  3. CIMZIA [Suspect]
     Indication: RHEUMATOID ARTHRITIS
     Route: 058
     Dates: start: 20110217
  4. CA VIT D [Concomitant]
     Indication: OSTEOPOROSIS
     Dosage: SINGLE DOSE/ DAILY DOSE: 1000MG/880 IE
     Route: 048
     Dates: start: 20070306, end: 20110425
  5. HAMATOPHAN [Concomitant]
     Indication: IRON DEFICIENCY ANAEMIA
     Route: 048
     Dates: start: 20101215
  6. ENTOCORT EC [Concomitant]
     Indication: COLITIS ULCERATIVE
     Route: 054
     Dates: start: 20110206
  7. ERGOCALCIFEROL [Concomitant]
     Indication: OSTEOPOROSIS PROPHYLAXIS
     Dates: start: 20070306
  8. CYCLOSPORINE [Concomitant]
     Dosage: DAILY DOSE: 125 MG
     Dates: start: 20110524, end: 20110614
  9. COLIFOAM [Concomitant]
     Indication: COLITIS
     Dosage: 1 TABLET TWICE A DAY
     Dates: start: 20110203, end: 20110714
  10. PREDNISONE [Concomitant]
     Indication: RHEUMATOID ARTHRITIS
     Route: 048
     Dates: start: 20091229
  11. PREDNISONE [Concomitant]
     Route: 048
     Dates: start: 20110705
  12. CYCLOSPORINE [Concomitant]
     Indication: RHEUMATOID ARTHRITIS
     Dates: start: 20110217, end: 20110327
  13. CYCLOSPORINE [Concomitant]
     Dates: start: 20110621, end: 20110622
  14. EPOMAX [Concomitant]
     Indication: COLITIS
     Dates: start: 20110204
  15. PREDNISOLONE [Concomitant]
     Route: 048
     Dates: start: 20101108, end: 20110328
  16. SANDIMMUN OPT [Concomitant]
     Indication: SPONDYLITIS
     Route: 048
     Dates: start: 20110217, end: 20110328
  17. SANDIMMUN OPT [Concomitant]
     Route: 048
     Dates: start: 20110329
  18. PREDNISOLONE [Concomitant]
     Indication: RHEUMATOID ARTHRITIS
     Route: 048
     Dates: start: 20110329
  19. CA VIT D [Concomitant]
     Indication: PROPHYLAXIS
     Dosage: SINGLE DOSE/ DAILY DOSE: 1000MG/880 IE
     Route: 048
     Dates: start: 20070306, end: 20110425
  20. PANTOPRAZOLE [Concomitant]
     Indication: GASTRITIS PROPHYLAXIS
     Route: 048
     Dates: start: 20110103, end: 20110101
  21. CYCLOSPORINE [Concomitant]
     Dates: start: 20110615, end: 20110620
  22. CIMZIA [Suspect]
     Route: 058
     Dates: start: 20110106, end: 20110210
  23. BUDESONIDE [Concomitant]
     Dates: start: 20110701
  24. KOHLE-TABLETTEN [Concomitant]
     Indication: COLITIS
     Dosage: 1 TABLET AS NECESSARY
     Dates: start: 20110223
  25. CYCLOSPORINE [Concomitant]
     Dates: start: 20110328, end: 20110523
  26. CYCLOSPORINE [Concomitant]
     Dates: start: 20110623, end: 20110625
  27. ERGOCALCIFEROL [Concomitant]
     Dosage: DAILY DOSE: 1000 IE (500 IE BID)
     Dates: start: 20110426
  28. BUDESONIDE [Concomitant]
     Indication: COLITIS
     Dosage: 1 KE, AS NEEDED
     Dates: start: 20110217, end: 20110630

REACTIONS (1)
  - COLITIS ULCERATIVE [None]
